FAERS Safety Report 24088849 (Version 1)
Quarter: 2024Q3

REPORT INFORMATION
  Report Type: Spontaneous
  Country: MY (occurrence: MY)
  Receive Date: 20240715
  Receipt Date: 20240715
  Transmission Date: 20241016
  Serious: Yes (Death)
  Sender: ROCHE
  Company Number: MY-ROCHE-10000023936

PATIENT

DRUGS (1)
  1. HEMLIBRA [Suspect]
     Active Substance: EMICIZUMAB-KXWH
     Indication: Product used for unknown indication
     Dosage: 1.57 MG/KG
     Route: 065

REACTIONS (1)
  - Myocardial infarction [Fatal]
